FAERS Safety Report 6261959-3 (Version None)
Quarter: 2009Q3

REPORT INFORMATION
  Report Type: 
  Country: None (occurrence: None)
  Receive Date: 20090709
  Receipt Date: 20090630
  Transmission Date: 20100115
  Serious: Yes (Death)
  Sender: FDA-Public Use
  Company Number: B0582854A

PATIENT
  Age: 63 Year
  Sex: Male

DRUGS (4)
  1. HYCAMTIN [Suspect]
     Route: 042
  2. CISPLATIN [Suspect]
     Route: 042
  3. IRINOTECAN HYDROCHLORIDE [Suspect]
     Route: 042
  4. RADIOTHERAPY [Concomitant]

REACTIONS (1)
  - LUNG DISORDER [None]
